FAERS Safety Report 17580621 (Version 2)
Quarter: 2021Q3

REPORT INFORMATION
  Report Type: Report from Study
  Country: DE (occurrence: DE)
  Receive Date: 20200325
  Receipt Date: 20210723
  Transmission Date: 20211014
  Serious: Yes (Hospitalization, Other)
  Sender: FDA-Public Use
  Company Number: DE-MYLANLABS-2020M1030302

PATIENT
  Age: 67 Year
  Sex: Female
  Weight: 59 kg

DRUGS (19)
  1. HUMIRA [Suspect]
     Active Substance: ADALIMUMAB
     Dosage: 40 MILLIGRAM, QW
     Route: 058
     Dates: start: 20161117
  2. CANDESARTAN. [Concomitant]
     Active Substance: CANDESARTAN
     Indication: PRODUCT USED FOR UNKNOWN INDICATION
     Dosage: 32 MILLIGRAM, QD
  3. METAMIZOL                          /06276701/ [Concomitant]
     Active Substance: METAMIZOLE
     Indication: PRODUCT USED FOR UNKNOWN INDICATION
     Dosage: 2000 MILLIGRAM, QD
  4. FOLSAN [Concomitant]
     Active Substance: FOLIC ACID
     Indication: PRODUCT USED FOR UNKNOWN INDICATION
     Dosage: 5 MILLIGRAM, QD
  5. PROCORALAN [Concomitant]
     Active Substance: IVABRADINE
     Indication: PRODUCT USED FOR UNKNOWN INDICATION
     Dosage: 10 MILLIGRAM
  6. DICLOFENAC [Suspect]
     Active Substance: DICLOFENAC
     Indication: PRODUCT USED FOR UNKNOWN INDICATION
     Dosage: UNK
     Route: 065
  7. HUMIRA [Suspect]
     Active Substance: ADALIMUMAB
     Indication: PSORIATIC ARTHROPATHY
     Dosage: UNK
  8. FERRO SANOL [Concomitant]
     Active Substance: FERROUS GLYCINE SULFATE
     Indication: PRODUCT USED FOR UNKNOWN INDICATION
     Dosage: 2 UNK, QD
  9. TILIDIN [Concomitant]
     Active Substance: NALOXONE HYDROCHLORIDE\TILIDINE HYDROCHLORIDE
     Indication: PRODUCT USED FOR UNKNOWN INDICATION
     Dosage: 100/8 MG
  10. ESOMEPRAZOL                        /01479301/ [Concomitant]
     Active Substance: ESOMEPRAZOLE
     Indication: PRODUCT USED FOR UNKNOWN INDICATION
     Dosage: 80 MILLIGRAM, QD
  11. ESOMEPRAZOL                        /01479301/ [Concomitant]
     Active Substance: ESOMEPRAZOLE
     Dosage: 40 MILLIGRAM, QD
  12. MOVICOL [Concomitant]
     Active Substance: POLYETHYLENE GLYCOL 3350\POTASSIUM CHLORIDE\SODIUM BICARBONATE\SODIUM CHLORIDE
     Indication: PRODUCT USED FOR UNKNOWN INDICATION
     Dosage: SACHET
  13. HUMIRA [Suspect]
     Active Substance: ADALIMUMAB
     Indication: PSORIASIS
     Dosage: 40 MILLIGRAM
     Route: 058
     Dates: start: 20110907
  14. OPIPRAMOL [Concomitant]
     Active Substance: OPIPRAMOL
     Indication: PRODUCT USED FOR UNKNOWN INDICATION
     Dosage: 100 MILLIGRAM, QD
  15. CALCIUM [Concomitant]
     Active Substance: CALCIUM
     Indication: PRODUCT USED FOR UNKNOWN INDICATION
     Dosage: 1000 MILLIGRAM, QD
  16. HUMIRA [Suspect]
     Active Substance: ADALIMUMAB
     Dosage: 40 MILLIGRAM, Q2W
     Route: 058
     Dates: start: 20110907
  17. PROCORALAN [Concomitant]
     Active Substance: IVABRADINE
     Indication: PRODUCT USED FOR UNKNOWN INDICATION
     Dosage: 10 MILLIGRAM, QD
  18. FRAGMIN [Concomitant]
     Active Substance: DALTEPARIN SODIUM
     Indication: PRODUCT USED FOR UNKNOWN INDICATION
     Dosage: UNK, QD
     Route: 058
     Dates: start: 2020, end: 2020
  19. L?THYROXIN                         /00068001/ [Concomitant]
     Active Substance: LEVOTHYROXINE
     Indication: PRODUCT USED FOR UNKNOWN INDICATION
     Dosage: 125 MICROGRAM, QD(0.5/DAY)

REACTIONS (70)
  - Cholecystectomy [Unknown]
  - Cardiomegaly [Unknown]
  - Pleural effusion [Recovered/Resolved]
  - White blood cell count increased [Recovered/Resolved]
  - Bundle branch block left [Unknown]
  - Oesophagitis [Recovered/Resolved]
  - Impaired quality of life [Unknown]
  - Gastric ulcer [Unknown]
  - Hypothyroidism [Unknown]
  - Contrast media allergy [Unknown]
  - Abdominal pain upper [Unknown]
  - Thrombophlebitis [Unknown]
  - Gastritis [Unknown]
  - Fatigue [Unknown]
  - Red cell distribution width increased [Not Recovered/Not Resolved]
  - Blood iron decreased [Unknown]
  - Hiatus hernia [Unknown]
  - Gastrointestinal tract adenoma [Unknown]
  - Muscle spasms [Unknown]
  - Lordosis [Recovered/Resolved]
  - Osteochondrosis [Recovered/Resolved]
  - Aortic arteriosclerosis [Not Recovered/Not Resolved]
  - Lymphadenopathy [Recovered/Resolved]
  - Abdominal pain lower [Unknown]
  - Skin striae [Unknown]
  - Oedema peripheral [Unknown]
  - Red blood cell count decreased [Not Recovered/Not Resolved]
  - Haemoglobin decreased [Not Recovered/Not Resolved]
  - Blood uric acid increased [Not Recovered/Not Resolved]
  - C-reactive protein increased [Recovered/Resolved]
  - Abdominal distension [Unknown]
  - Spinal osteoarthritis [Recovered/Resolved]
  - Iron deficiency [Unknown]
  - Varices oesophageal [Unknown]
  - Bile duct stone [Unknown]
  - Blood calcium decreased [Recovered/Resolved]
  - Alanine aminotransferase increased [Recovered/Resolved]
  - Kyphosis [Recovered/Resolved]
  - Anaemia folate deficiency [Recovered/Resolved]
  - Upper gastrointestinal haemorrhage [Recovered/Resolved]
  - Bone marrow oedema [Unknown]
  - Gastrooesophageal reflux disease [Unknown]
  - Portal hypertensive gastropathy [Unknown]
  - International normalised ratio decreased [Not Recovered/Not Resolved]
  - Angiodysplasia [Unknown]
  - Epigastric discomfort [Unknown]
  - Aspartate aminotransferase increased [Unknown]
  - Blood creatinine increased [Not Recovered/Not Resolved]
  - Asthenia [Unknown]
  - Blood loss anaemia [Unknown]
  - Protein total decreased [Recovered/Resolved]
  - Gastritis erosive [Recovered/Resolved]
  - Nausea [Unknown]
  - Dry skin [Unknown]
  - Red blood cell sedimentation rate increased [Unknown]
  - Pneumobilia [Unknown]
  - Drug hypersensitivity [Unknown]
  - Spinal pain [Unknown]
  - Gastric antral vascular ectasia [Recovered/Resolved]
  - Gait disturbance [Unknown]
  - Blood thyroid stimulating hormone increased [Unknown]
  - Haematocrit decreased [Recovered/Resolved]
  - Reticulocyte count increased [Not Recovered/Not Resolved]
  - Trichorrhexis [Not Recovered/Not Resolved]
  - Abdominal adhesions [Unknown]
  - Hypertension [Unknown]
  - Mean cell haemoglobin concentration decreased [Not Recovered/Not Resolved]
  - Pruritus [Not Recovered/Not Resolved]
  - Constipation [Unknown]
  - Gamma-glutamyltransferase increased [Not Recovered/Not Resolved]

NARRATIVE: CASE EVENT DATE: 2017
